FAERS Safety Report 22918289 (Version 7)
Quarter: 2025Q2

REPORT INFORMATION
  Report Type: Other
  Country: US (occurrence: US)
  Receive Date: 20230907
  Receipt Date: 20250507
  Transmission Date: 20250717
  Serious: Yes (Other)
  Sender: TRAVERE THERAPEUTICS
  Company Number: US-TRAVERE-2023TVT00409

PATIENT
  Age: 63 Year
  Sex: Male

DRUGS (2)
  1. FILSPARI [Suspect]
     Active Substance: SPARSENTAN
     Indication: Haematuria
     Dosage: LOT NUMBER: 1989618, EXPIRY DATE: 31-AUG-2024
     Route: 048
     Dates: start: 202305
  2. FILSPARI [Suspect]
     Active Substance: SPARSENTAN
     Indication: IgA nephropathy
     Dosage: DOSE DECREASED
     Route: 048

REACTIONS (10)
  - Glomerular filtration rate decreased [Unknown]
  - Gallbladder disorder [Recovered/Resolved]
  - Abdominal pain upper [Unknown]
  - Muscle spasms [Unknown]
  - Blood pressure decreased [Unknown]
  - Pain [Unknown]
  - Mass [Unknown]
  - Pruritus [Unknown]
  - Dry skin [Unknown]
  - Off label use [Unknown]

NARRATIVE: CASE EVENT DATE: 20240625
